FAERS Safety Report 14102568 (Version 16)
Quarter: 2020Q2

REPORT INFORMATION
  Report Type: Report from Study
  Country: None (occurrence: JP)
  Receive Date: 20171018
  Receipt Date: 20200601
  Transmission Date: 20200713
  Serious: Yes (Hospitalization)
  Sender: FDA-Public Use
  Company Number: JP-ABBVIE-17K-087-2133159-00

PATIENT
  Age: 70 Year
  Sex: Male
  Weight: 50 kg

DRUGS (20)
  1. APIXABAN [Concomitant]
     Active Substance: APIXABAN
     Indication: PRODUCT USED FOR UNKNOWN INDICATION
     Route: 048
  2. CLONAZEPAM. [Concomitant]
     Active Substance: CLONAZEPAM
     Indication: PRODUCT USED FOR UNKNOWN INDICATION
     Route: 048
  3. LANSOPRAZOLE. [Concomitant]
     Active Substance: LANSOPRAZOLE
     Indication: PROPHYLAXIS
     Route: 048
  4. SHIGMABITAN [Concomitant]
     Indication: PROPHYLAXIS
     Route: 048
     Dates: start: 20171106
  5. ARIPIPRAZOLE. [Concomitant]
     Active Substance: ARIPIPRAZOLE
     Indication: PRODUCT USED FOR UNKNOWN INDICATION
     Route: 048
     Dates: start: 20171114, end: 20171218
  6. DUODOPA [Suspect]
     Active Substance: CARBIDOPA\LEVODOPA
     Indication: PARKINSON^S DISEASE
     Dosage: MD: 6 ML, CD: 1.5 ML/HR X 16 HR
     Route: 050
     Dates: start: 20170908, end: 20170913
  7. DUODOPA [Suspect]
     Active Substance: CARBIDOPA\LEVODOPA
     Dosage: MD: 9.5 ML CD: 3.7 ML / HR ? 16 HRS ED: 1.8 ML
     Route: 050
     Dates: start: 20180123, end: 20180226
  8. DUODOPA [Suspect]
     Active Substance: CARBIDOPA\LEVODOPA
     Dosage: MD: 9.5 ML, CD: 3.7 ML/HR X 16 HR, ED: 1.6 ML/UNIT X1
     Route: 050
     Dates: start: 20170915
  9. DUODOPA [Suspect]
     Active Substance: CARBIDOPA\LEVODOPA
     Dosage: MD: 9.5 ML, CD: 3.7 ML / HR ? 16 HRS, ED: 1.9 ML
     Route: 050
     Dates: start: 20180227, end: 20180423
  10. SENNOSIDE [Concomitant]
     Active Substance: SENNOSIDES
     Indication: PRODUCT USED FOR UNKNOWN INDICATION
     Route: 048
     Dates: end: 20180918
  11. ZONISAMIDE. [Concomitant]
     Active Substance: ZONISAMIDE
     Indication: PRODUCT USED FOR UNKNOWN INDICATION
  12. CARBIDOPA, LEVODOPA AND ENTACAPONE MIXT [Concomitant]
     Indication: PARKINSON^S DISEASE
     Route: 048
     Dates: start: 20171219
  13. DUODOPA [Suspect]
     Active Substance: CARBIDOPA\LEVODOPA
     Dosage: MD: 9.5 ML CD: 3.7 ML / HR ? 16 HRS ED: 1.7 ML
     Route: 050
     Dates: start: 20180109, end: 20180122
  14. VERAPAMIL HYDROCHLORIDE. [Concomitant]
     Active Substance: VERAPAMIL HYDROCHLORIDE
     Indication: PRODUCT USED FOR UNKNOWN INDICATION
     Route: 048
  15. ZINC ACETATE HYDRATE [Concomitant]
     Indication: PRODUCT USED FOR UNKNOWN INDICATION
     Route: 048
     Dates: start: 20180213
  16. DUODOPA [Suspect]
     Active Substance: CARBIDOPA\LEVODOPA
     Dosage: 28.4ML/DAY
     Route: 050
     Dates: start: 20170915, end: 20180108
  17. DUODOPA [Suspect]
     Active Substance: CARBIDOPA\LEVODOPA
     Dosage: MD: 9.5 ML CD: 3.7 ML / HR ? 16 HRS ED: 2.0 ML
     Route: 050
     Dates: start: 20180424
  18. ROTIGOTINE [Concomitant]
     Active Substance: ROTIGOTINE
     Indication: PARKINSON^S DISEASE
     Route: 062
  19. FUDOSTEINE [Concomitant]
     Active Substance: FUDOSTEINE
     Indication: PROPHYLAXIS
     Route: 048
     Dates: end: 20190521
  20. SUVOREXANT. [Concomitant]
     Active Substance: SUVOREXANT
     Indication: PRODUCT USED FOR UNKNOWN INDICATION
     Route: 048
     Dates: start: 20171023, end: 20180917

REACTIONS (14)
  - Hypozincaemia [Recovered/Resolved]
  - Stoma site hypergranulation [Not Recovered/Not Resolved]
  - Parkinson^s disease [Unknown]
  - Sleep disorder [Unknown]
  - Dyskinesia [Unknown]
  - Abdominal abscess [Recovered/Resolved]
  - Pyrexia [Recovered/Resolved]
  - Therapeutic product effect incomplete [Unknown]
  - Device occlusion [Unknown]
  - Therapeutic product effect increased [Unknown]
  - Rib fracture [Unknown]
  - On and off phenomenon [Unknown]
  - Stoma site discharge [Unknown]
  - Stoma site erythema [Unknown]

NARRATIVE: CASE EVENT DATE: 20171007
